FAERS Safety Report 6163402-1 (Version None)
Quarter: 2009Q2

REPORT INFORMATION
  Report Type: 
  Country: None (occurrence: None)
  Receive Date: 20090422
  Receipt Date: 20090418
  Transmission Date: 20091009
  Serious: Yes (Death)
  Sender: FDA-Public Use
  Company Number: PHHY2009US14798

PATIENT
  Age: 17 Year
  Sex: Male

DRUGS (13)
  1. CYCLOSPORINE [Suspect]
     Indication: LUNG TRANSPLANT
  2. BASILIXIMAB [Suspect]
     Indication: LUNG TRANSPLANT
     Dosage: UNK
  3. BASILIXIMAB [Suspect]
     Dosage: UNK
  4. MYCOPHENOLATE MOFETIL [Concomitant]
     Indication: IMMUNOSUPPRESSION
  5. PREDNISONE [Concomitant]
     Dosage: 2MG/KG/DAY
     Route: 048
  6. PREDNISONE [Concomitant]
     Dosage: 1MG/KG/DAY
     Route: 048
  7. PREDNISONE [Concomitant]
     Dosage: 0.5MG/KG/DAY
     Route: 048
  8. LINEZOLID [Concomitant]
  9. CEFOXITIN [Concomitant]
  10. AMIKACIN [Concomitant]
  11. TIGECYCLINE [Concomitant]
     Dosage: 50 MG EVERY 12 HOURS
     Route: 042
  12. CEFTAZIDIME [Concomitant]
     Route: 042
  13. VANCOMYCIN HCL [Concomitant]
     Route: 042

REACTIONS (9)
  - ACID FAST BACILLI INFECTION [None]
  - CANDIDIASIS [None]
  - DEBRIDEMENT [None]
  - MYCOBACTERIUM ABSCESSUS INFECTION [None]
  - NAUSEA [None]
  - OSTEONECROSIS [None]
  - VOMITING [None]
  - WOUND DRAINAGE [None]
  - WOUND INFECTION [None]
